FAERS Safety Report 9247813 (Version 2)
Quarter: 2013Q2

REPORT INFORMATION
  Report Type: Spontaneous
  Country: GB (occurrence: GB)
  Receive Date: 20130423
  Receipt Date: 20130613
  Transmission Date: 20140414
  Serious: Yes (Other)
  Sender: FDA-Public Use
  Company Number: GB-MYLANLABS-2013S1007844

PATIENT
  Age: 63 Year
  Sex: Female
  Weight: 68.94 kg

DRUGS (4)
  1. AMLODIPINE [Suspect]
     Indication: HYPERTENSION
     Route: 048
     Dates: start: 20130127
  2. ATORVASTATIN [Concomitant]
     Indication: PRODUCT USED FOR UNKNOWN INDICATION
  3. VALACICLOVIR [Concomitant]
     Indication: PRODUCT USED FOR UNKNOWN INDICATION
  4. VALSARTAN [Concomitant]
     Indication: PRODUCT USED FOR UNKNOWN INDICATION

REACTIONS (7)
  - Throat irritation [Recovered/Resolved]
  - Aphonia [Unknown]
  - Foreign body [Recovered/Resolved]
  - Productive cough [Unknown]
  - Oropharyngeal pain [Unknown]
  - Tablet physical issue [Recovered/Resolved]
  - Dysphagia [Unknown]
